FAERS Safety Report 24760548 (Version 1)
Quarter: 2024Q4

REPORT INFORMATION
  Report Type: Spontaneous
  Country: US (occurrence: US)
  Receive Date: 20241220
  Receipt Date: 20241220
  Transmission Date: 20250115
  Serious: Yes (Other)
  Sender: COOPERSURGICAL
  Company Number: US-COOPERSURGICAL, INC.-2024CPS004026

PATIENT
  Age: 35 Year
  Sex: Female
  Weight: 154.2 kg

DRUGS (2)
  1. PARAGARD T 380A [Suspect]
     Active Substance: COPPER
     Indication: Contraception
     Dosage: UNK
     Route: 015
     Dates: start: 20100621
  2. LARIN [Concomitant]
     Dosage: UNK
     Dates: start: 20200615, end: 20220728

REACTIONS (13)
  - Reproductive complication associated with device [Not Recovered/Not Resolved]
  - Device breakage [Not Recovered/Not Resolved]
  - Foreign body in reproductive tract [Not Recovered/Not Resolved]
  - Complication of device removal [Not Recovered/Not Resolved]
  - Embedded device [Not Recovered/Not Resolved]
  - Female reproductive neoplasm [Unknown]
  - Endometriosis [Unknown]
  - Anxiety [Unknown]
  - Depression [Unknown]
  - Abnormal uterine bleeding [Not Recovered/Not Resolved]
  - Pelvic pain [Not Recovered/Not Resolved]
  - Intentional device use issue [Unknown]
  - Off label use [Unknown]

NARRATIVE: CASE EVENT DATE: 20200601
